FAERS Safety Report 26143446 (Version 1)
Quarter: 2025Q4

REPORT INFORMATION
  Report Type: Spontaneous
  Country: JP (occurrence: JP)
  Receive Date: 20251211
  Receipt Date: 20251211
  Transmission Date: 20260117
  Serious: Yes (Other)
  Sender: ROCHE
  Company Number: JP-CHUGAI-2025029741

PATIENT
  Sex: Male

DRUGS (1)
  1. VABYSMO [Suspect]
     Active Substance: FARICIMAB-SVOA
     Indication: Diabetic retinal oedema
     Dosage: UNK, STRENGTH 120 MG/ML
     Route: 031

REACTIONS (2)
  - Loss of visual contrast sensitivity [Unknown]
  - Vitreous disorder [Unknown]
